FAERS Safety Report 9168943 (Version 3)
Quarter: 2013Q2

REPORT INFORMATION
  Report Type: Spontaneous
  Country: FR (occurrence: FR)
  Receive Date: 20130318
  Receipt Date: 20130522
  Transmission Date: 20140414
  Serious: Yes (Life-Threatening, Hospitalization, Other)
  Sender: FDA-Public Use
  Company Number: FR-ROCHE-1202713

PATIENT
  Age: 48 Year
  Sex: Female
  Weight: 75 kg

DRUGS (9)
  1. PEGASYS [Suspect]
     Indication: HEPATITIS C
     Route: 058
     Dates: start: 20120518, end: 20130313
  2. COPEGUS [Suspect]
     Indication: HEPATITIS C
     Route: 048
     Dates: start: 20120518, end: 20130313
  3. COPEGUS [Suspect]
     Dosage: DOSE REDUCED
     Route: 065
  4. COPEGUS [Suspect]
     Dosage: DOSE REDUCED
     Route: 065
  5. COPEGUS [Suspect]
     Dosage: DOSE INCREASED, 5 TABS DAILY
     Route: 065
     Dates: start: 201212
  6. RIBAVIRIN [Suspect]
     Indication: HEPATITIS C
     Route: 065
  7. VICTOZA [Suspect]
     Indication: TYPE 2 DIABETES MELLITUS
     Route: 058
     Dates: start: 20120621, end: 20130313
  8. TARDYFERON [Concomitant]
     Route: 048
     Dates: start: 20120518, end: 20130313
  9. STILNOX [Concomitant]
     Route: 048
     Dates: start: 20120518, end: 20130313

REACTIONS (3)
  - Angioedema [Recovered/Resolved]
  - Pancytopenia [Recovering/Resolving]
  - Weight decreased [Unknown]
